FAERS Safety Report 21891034 (Version 1)
Quarter: 2023Q1

REPORT INFORMATION
  Report Type: 
  Country: None (occurrence: None)
  Receive Date: 20230120
  Receipt Date: 20230120
  Transmission Date: 20230418
  Serious: Yes (Other)
  Sender: FDA-Public Use
  Company Number: None

PATIENT
  Age: 25 Year
  Sex: Female

DRUGS (1)
  1. MYORISAN [Suspect]
     Active Substance: ISOTRETINOIN

REACTIONS (5)
  - Visual impairment [Unknown]
  - Arthralgia [Unknown]
  - Headache [Unknown]
  - Panic attack [Unknown]
  - Nausea [Unknown]
